FAERS Safety Report 7714124-4 (Version None)
Quarter: 2011Q3

REPORT INFORMATION
  Report Type: 
  Country: None (occurrence: None)
  Receive Date: 20110829
  Receipt Date: 20110823
  Transmission Date: 20111222
  Serious: Yes (Death)
  Sender: FDA-Public Use
  Company Number: DE-BRISTOL-MYERS SQUIBB COMPANY-15997125

PATIENT

DRUGS (1)
  1. YERVOY [Suspect]

REACTIONS (2)
  - DEATH [None]
  - BLOOD LACTATE DEHYDROGENASE INCREASED [None]
